FAERS Safety Report 8906373 (Version 1)
Quarter: 2012Q4

REPORT INFORMATION
  Report Type: Spontaneous
  Country: US (occurrence: None)
  Receive Date: 20121112
  Receipt Date: 20121112
  Transmission Date: 20130627
  Serious: Yes (Life-Threatening, Hospitalization)
  Sender: FDA-Public Use
  Company Number: None

PATIENT
  Sex: Male
  Weight: 88.45 kg

DRUGS (2)
  1. PRADAXA [Suspect]
     Indication: HEART VALVE REPLACEMENT
     Dosage: 1 Tab twice daily
     Dates: start: 20120815, end: 20120825
  2. PRADAXA [Suspect]
     Dosage: 1 Tab twice daily
     Dates: start: 20120815, end: 20120825

REACTIONS (4)
  - Cerebrovascular accident [None]
  - Visual field defect [None]
  - Impaired driving ability [None]
  - Activities of daily living impaired [None]
